FAERS Safety Report 4480792-6 (Version None)
Quarter: 2004Q4

REPORT INFORMATION
  Report Type: 
  Country: None (occurrence: None)
  Receive Date: 20041019
  Receipt Date: 20041011
  Transmission Date: 20050328
  Serious: No
  Sender: FDA-Public Use
  Company Number: 204319

PATIENT
  Age: 54 Year
  Sex: Male
  Weight: 63.5 kg

DRUGS (23)
  1. XOLAIR [Suspect]
     Indication: ASTHMA
     Dosage: 375 MG, Q2W, SUBCUTANEOUS
     Route: 058
     Dates: start: 20040113, end: 20040113
  2. ALTACE [Concomitant]
  3. ASPIRIN [Concomitant]
  4. CLARINEX [Concomitant]
  5. CYCLOBENZAPRINE HYDROCHLORIDE [Concomitant]
  6. FLONASE [Concomitant]
  7. FORADIL [Concomitant]
  8. HYDROCHLOROTHIAZIDE [Concomitant]
  9. NEXIUM [Concomitant]
  10. NITROSTAT [Concomitant]
  11. PREDNISONE [Concomitant]
  12. MEDROXYPROGESTERONE ACETATE [Concomitant]
  13. PULMICORT [Concomitant]
  14. UNIPHYL [Concomitant]
  15. VENTOLINE SPRAY (ALBUTEROL SULFATE, ALBUTEROL) [Concomitant]
  16. ZOCOR [Concomitant]
  17. VERAPAMIL [Concomitant]
  18. ZOLOFT [Concomitant]
  19. CENTRUM SILVER MULTIVITAMIN (MINERALS NOS, MULTIVITAMINS NOS) [Concomitant]
  20. ADVAIR DISKUS (SALMETEROL XINAFOATE, FLUTICASONE PROPIONATE) [Concomitant]
  21. AUGMENTIN (AMOXICILLIN, CLAVULANATE POTASSIUM) [Concomitant]
  22. NORVASC [Concomitant]
  23. QVAR (BECLOMETHASONE DIPROPIONATE) [Concomitant]

REACTIONS (9)
  - ANGIONEUROTIC OEDEMA [None]
  - ASTHMA [None]
  - CHEST DISCOMFORT [None]
  - CONDITION AGGRAVATED [None]
  - EYE IRRITATION [None]
  - HYPERSENSITIVITY [None]
  - PRURITUS [None]
  - SWELLING FACE [None]
  - TINNITUS [None]
